FAERS Safety Report 10274366 (Version 1)
Quarter: 2014Q3

REPORT INFORMATION
  Report Type: Spontaneous
  Country: US (occurrence: US)
  Receive Date: 20140702
  Receipt Date: 20140702
  Transmission Date: 20150326
  Serious: Yes (Hospitalization, Other)
  Sender: FDA-Public Use
  Company Number: US-ELI_LILLY_AND_COMPANY-US201406007694

PATIENT
  Sex: Male

DRUGS (16)
  1. INSULIN LISPRO [Suspect]
     Active Substance: INSULIN LISPRO
     Indication: TYPE 2 DIABETES MELLITUS
     Dosage: UNK
     Route: 065
     Dates: start: 2000
  2. LANTUS [Concomitant]
     Active Substance: INSULIN GLARGINE
  3. LAMOTRIGINE. [Concomitant]
     Active Substance: LAMOTRIGINE
  4. CARBIDOPA/LEVODOPA [Concomitant]
     Active Substance: CARBIDOPA\LEVODOPA
     Dosage: UNK
  5. METOLAZONE. [Concomitant]
     Active Substance: METOLAZONE
     Route: 065
  6. MIRAPEX [Concomitant]
     Active Substance: PRAMIPEXOLE DIHYDROCHLORIDE
     Route: 065
  7. TERAZOSIN [Concomitant]
     Active Substance: TERAZOSIN\TERAZOSIN HYDROCHLORIDE
  8. AMLODIPINE [Concomitant]
     Active Substance: AMLODIPINE BESYLATE
  9. BUPROPION [Concomitant]
     Active Substance: BUPROPION
  10. HYDRALAZINE [Concomitant]
     Active Substance: HYDRALAZINE HYDROCHLORIDE
  11. LISINOPRIL. [Concomitant]
     Active Substance: LISINOPRIL
  12. FUROSEMIDE. [Concomitant]
     Active Substance: FUROSEMIDE
  13. LOSARTAN [Concomitant]
     Active Substance: LOSARTAN
  14. DIGOXIN. [Concomitant]
     Active Substance: DIGOXIN
  15. INSULIN LISPRO [Suspect]
     Active Substance: INSULIN LISPRO
     Dosage: 30 U, UNK
     Route: 065
  16. ALLOPURINOL. [Concomitant]
     Active Substance: ALLOPURINOL

REACTIONS (8)
  - Rheumatoid arthritis [Unknown]
  - Bipolar disorder [Unknown]
  - Blood glucose increased [Unknown]
  - Cardiac failure congestive [Unknown]
  - Visual acuity reduced [Unknown]
  - Drug ineffective [Recovered/Resolved]
  - Parkinson^s disease [Unknown]
  - Fall [Unknown]

NARRATIVE: CASE EVENT DATE: 2013
